FAERS Safety Report 5197794-7 (Version None)
Quarter: 2006Q4

REPORT INFORMATION
  Report Type: 
  Country: None (occurrence: None)
  Receive Date: 20061228
  Receipt Date: 20061214
  Transmission Date: 20070319
  Serious: Yes (Death)
  Sender: FDA-Public Use
  Company Number: 15315

PATIENT
  Age: 60 Year
  Sex: Female

DRUGS (4)
  1. PACLITAXEL [Suspect]
     Indication: ENDOMETRIAL CANCER
     Dosage: 175 MG/M2
  2. PACLITAXEL [Suspect]
     Indication: OVARIAN CANCER
     Dosage: 175 MG/M2
  3. CBCDA [Suspect]
     Indication: ENDOMETRIAL CANCER
     Dosage: 550 MG
  4. CBCDA [Suspect]
     Indication: OVARIAN CANCER
     Dosage: 550 MG

REACTIONS (6)
  - ARTERIAL THROMBOSIS LIMB [None]
  - HEPATIC FUNCTION ABNORMAL [None]
  - METASTASES TO LIVER [None]
  - NECROSIS [None]
  - PERIPHERAL ARTERIAL OCCLUSIVE DISEASE [None]
  - THROMBOCYTOPENIA [None]
